FAERS Safety Report 4817044-8 (Version None)
Quarter: 2005Q4

REPORT INFORMATION
  Report Type: 
  Country: None (occurrence: None)
  Receive Date: 20051101
  Receipt Date: 20051023
  Transmission Date: 20060501
  Serious: Yes (Death, Hospitalization)
  Sender: FDA-Public Use
  Company Number: 2005-UK-00312UK

PATIENT
  Sex: Male

DRUGS (4)
  1. BECLOMETHASONE DIPROPIONATE [Suspect]
     Route: 065
  2. SALBUTAMOL [Suspect]
     Route: 065
  3. TIOTROPIUM BROMIDE [Suspect]
     Route: 055
  4. QUININE [Suspect]
     Route: 065

REACTIONS (1)
  - CHRONIC OBSTRUCTIVE PULMONARY DISEASE [None]
